FAERS Safety Report 4797270-7 (Version None)
Quarter: 2005Q4

REPORT INFORMATION
  Report Type: 
  Country: None (occurrence: None)
  Receive Date: 20051013
  Receipt Date: 20050822
  Transmission Date: 20060501
  Serious: Yes (Other)
  Sender: FDA-Public Use
  Company Number: US-GLAXOSMITHKLINE-A0571231A

PATIENT
  Age: 73 Year
  Sex: Female
  Weight: 74.5 kg

DRUGS (6)
  1. WELLBUTRIN XL [Suspect]
     Indication: DRUG USE FOR UNKNOWN INDICATION
     Dosage: 300MG PER DAY
     Route: 048
     Dates: start: 20050801, end: 20050818
  2. ACTONEL [Concomitant]
  3. SYNTHROID [Concomitant]
  4. NASONEX [Concomitant]
  5. ZYRTEC [Concomitant]
  6. DETROL LA [Concomitant]

REACTIONS (8)
  - ABNORMAL DREAMS [None]
  - DYSGEUSIA [None]
  - FEELING ABNORMAL [None]
  - INFLUENZA LIKE ILLNESS [None]
  - INSOMNIA [None]
  - MEDICATION ERROR [None]
  - POLLAKIURIA [None]
  - URINARY INCONTINENCE [None]
